FAERS Safety Report 11413897 (Version 1)
Quarter: 2015Q3

REPORT INFORMATION
  Report Type: Report from Study
  Country: US (occurrence: US)
  Receive Date: 20150824
  Receipt Date: 20150824
  Transmission Date: 20151125
  Serious: Yes (Hospitalization)
  Sender: FDA-Public Use
  Company Number: US-MALLINCKRODT-T201503926

PATIENT
  Age: 47 Year
  Sex: Female

DRUGS (35)
  1. B-COMPLEX + VITAMIN C [Concomitant]
     Indication: SUPPLEMENTATION THERAPY
     Dosage: 1 DF (TABLET), BID
  2. TIZANIDINE. [Concomitant]
     Active Substance: TIZANIDINE
     Indication: MIGRAINE PROPHYLAXIS
     Dosage: 3 DF (12 MG TABLETS), QHS
     Dates: start: 2008
  3. PROCHLORPERAZINE. [Concomitant]
     Active Substance: PROCHLORPERAZINE
     Indication: NAUSEA
     Dosage: 25 MG SUPP; ONE SUPP EVERY 6 HOURS AS NEEDED
  4. CALCIUM 600 WITH VITAMIN D [Concomitant]
     Dosage: 1 DF (TABLET), QD
  5. DOXEPIN [Concomitant]
     Active Substance: DOXEPIN
     Indication: HYPERSENSITIVITY
     Dosage: 2 DF (50 MG TABLETS), TID
     Dates: start: 201501
  6. DOXEPIN [Concomitant]
     Active Substance: DOXEPIN
     Indication: PRURITUS
  7. RAPAFLO [Concomitant]
     Active Substance: SILODOSIN
     Indication: URINARY INCONTINENCE
     Dosage: 8 MG, QD
     Dates: start: 201501
  8. TOPAMAX [Concomitant]
     Active Substance: TOPIRAMATE
     Indication: MIGRAINE PROPHYLAXIS
     Dosage: 50 MG, BID
     Dates: start: 2008
  9. BACLOFEN. [Concomitant]
     Active Substance: BACLOFEN
     Indication: GASTROOESOPHAGEAL REFLUX DISEASE
     Dosage: 10 MG, QD
     Dates: start: 201507
  10. BYSTOLIC [Concomitant]
     Active Substance: NEBIVOLOL HYDROCHLORIDE
     Indication: PALPITATIONS
     Dosage: 5 MG, QD
     Dates: start: 201501
  11. TOPAMAX [Concomitant]
     Active Substance: TOPIRAMATE
     Dosage: 50 MG; TWO TIMES A DAY
     Dates: start: 201502
  12. ALBUTEROL SULFATE. [Concomitant]
     Active Substance: ALBUTEROL SULFATE
     Indication: ASTHMA
     Dosage: 0.083% (2.5MG/3ML); 1 VIAL EVERY 4-6 HOURS AS NEEDED
     Dates: start: 201501
  13. BENADRYL [Concomitant]
     Active Substance: DIPHENHYDRAMINE HYDROCHLORIDE
     Dosage: 50MG/ML INJ, 10ML; INJECT 2MLS EVERY 8 HOURS AS NEEDED
     Route: 030
  14. MECLIZINE [Concomitant]
     Active Substance: MECLIZINE\MECLIZINE HYDROCHLORIDE
     Indication: VERTIGO
     Dosage: 25 MG TABLET; 2 TABLETS AS NEEDED 3 TIMES DAILY
  15. CARTIA XT [Concomitant]
     Active Substance: DILTIAZEM HYDROCHLORIDE
     Indication: PALPITATIONS
     Dosage: 120 MG, QD
     Dates: start: 201412
  16. LAMOTRIGINE. [Concomitant]
     Active Substance: LAMOTRIGINE
     Indication: MIGRAINE PROPHYLAXIS
     Dosage: 50 MG IN AM, 100 MG HS
     Dates: start: 2010
  17. POTASSIUM [Concomitant]
     Active Substance: POTASSIUM
     Dosage: 30 MEQ, QD
     Dates: start: 2015
  18. LORAZEPAM. [Concomitant]
     Active Substance: LORAZEPAM
     Indication: ANXIETY
     Dosage: 1 MG TABLET AS NEEDED
     Dates: start: 201506
  19. BUTALBITAL, ACETAMINOPHEN, AND CAFFEINE [Concomitant]
     Active Substance: ACETAMINOPHEN\BUTALBITAL\CAFFEINE
     Indication: MIGRAINE
     Dosage: 50-300-40 CP; TAKE 2 TABLETS AS NEEDED (3 TIMES DAY)
     Dates: start: 201501
  20. AMITRIPTYLINE [Concomitant]
     Active Substance: AMITRIPTYLINE
     Indication: MIGRAINE
     Dosage: 50 MG, TOTAL DOSE 200 MG
     Dates: start: 2010
  21. FLEXERIL [Concomitant]
     Active Substance: CYCLOBENZAPRINE HYDROCHLORIDE
     Indication: MIGRAINE
     Dosage: 10 MG TABLET; TAKE UP TO 3 TABLETS AS NEEDED EVERY 6 HOURS
  22. NARATRIPTAN [Concomitant]
     Active Substance: NARATRIPTAN HYDROCHLORIDE
     Indication: MIGRAINE
     Dosage: 2.5 MG TABLET; 1 TABLET AS NEEDED, MAY REPEAT ONCE IN 4 HOURS
  23. SUMAVEL [Concomitant]
     Active Substance: SUMATRIPTAN SUCCINATE
     Indication: MIGRAINE
     Dosage: 0.5-ML; USE ON INJECTION AS NEEDED EVERY 8 HOURS
  24. REPOSITORY CORTICOTROPIN INJECTION [Suspect]
     Active Substance: CORTICOTROPIN
     Dosage: 80 UNITS Q 72 HOURS
     Route: 058
     Dates: start: 20150615
  25. BUDESONIDE. [Concomitant]
     Active Substance: BUDESONIDE
     Indication: FIBROSIS
     Dosage: 0.5MG/2ML SUSP BID
     Dates: start: 201501
  26. OMEPRAZOLE. [Concomitant]
     Active Substance: OMEPRAZOLE
     Indication: GASTROOESOPHAGEAL REFLUX DISEASE
     Dosage: 40 MG, BID
     Dates: start: 201507
  27. TRIHEXYPHENIDYL [Concomitant]
     Active Substance: TRIHEXYPHENIDYL
     Indication: TREMOR
     Dosage: 2 MG, QD
     Dates: start: 2015
  28. LINACLOTIDE [Concomitant]
     Active Substance: LINACLOTIDE
     Indication: CONSTIPATION
     Dosage: 290 MCG DAILY
  29. MULTIVITAMIN [Concomitant]
     Active Substance: VITAMINS
     Dosage: 1 DF (TABLET), QD
  30. PREDNISONE. [Concomitant]
     Active Substance: PREDNISONE
     Dosage: 5 MG, TID
     Dates: start: 2015
  31. THEOPHYLLINE [Concomitant]
     Active Substance: THEOPHYLLINE ANHYDROUS
     Indication: DYSPNOEA
     Dosage: 2 DF (400 MG TABLETS), BID
     Dates: start: 2014
  32. RIZATRIPTAN. [Concomitant]
     Active Substance: RIZATRIPTAN
     Indication: MIGRAINE
     Dosage: 10 MG TABLET; 1 TABLET AS NEEDED EVERY 6 HOURS
  33. REPOSITORY CORTICOTROPIN INJECTION [Suspect]
     Active Substance: CORTICOTROPIN
     Indication: PULMONARY SARCOIDOSIS
     Dosage: 80 UNITS Q 72 HOURS
     Route: 058
     Dates: start: 201501, end: 20150526
  34. VALTREX [Concomitant]
     Active Substance: VALACYCLOVIR HYDROCHLORIDE
     Indication: PROPHYLAXIS
     Dosage: 500 MG, QHS
     Dates: start: 2015
  35. PHENERGAN [Concomitant]
     Active Substance: PROMETHAZINE HYDROCHLORIDE
     Indication: NAUSEA
     Dosage: 25 MG; 1 TABLET EVERY 6 HOURS AS NEEDED

REACTIONS (8)
  - Bacterial infection [Recovered/Resolved]
  - Malaise [Recovered/Resolved]
  - Herpes zoster [Recovered/Resolved]
  - Dysgeusia [Unknown]
  - Increased tendency to bruise [Not Recovered/Not Resolved]
  - Injection site bruising [Not Recovered/Not Resolved]
  - Headache [Unknown]
  - Abdominal discomfort [Unknown]

NARRATIVE: CASE EVENT DATE: 201505
